FAERS Safety Report 4864176-4 (Version None)
Quarter: 2005Q4

REPORT INFORMATION
  Report Type: 
  Country: None (occurrence: None)
  Receive Date: 20051219
  Receipt Date: 20051206
  Transmission Date: 20060501
  Serious: Yes (Death)
  Sender: FDA-Public Use
  Company Number: 2005166451

PATIENT
  Age: 59 Year
  Sex: Female

DRUGS (2)
  1. VFEND [Suspect]
     Indication: CANDIDIASIS
     Dosage: ORAL
     Route: 048
     Dates: start: 20050201
  2. MORPHINE [Concomitant]

REACTIONS (5)
  - APLASIA [None]
  - DISSEMINATED INTRAVASCULAR COAGULATION [None]
  - NECROSIS [None]
  - RASH PAPULAR [None]
  - THROMBOCYTOPENIA [None]
